FAERS Safety Report 7278651-9 (Version None)
Quarter: 2011Q1

REPORT INFORMATION
  Report Type: 
  Country: None (occurrence: None)
  Receive Date: 20110207
  Receipt Date: 20110202
  Transmission Date: 20110831
  Serious: No
  Sender: FDA-Public Use
  Company Number: US-PFIZER INC-2011024390

PATIENT
  Sex: Female
  Weight: 117.91 kg

DRUGS (8)
  1. PAXIL [Concomitant]
     Indication: HOT FLUSH
     Dosage: 40 MG, 1X/DAY
     Route: 048
  2. NORVASC [Concomitant]
     Indication: HYPERTENSION
     Dosage: 10 MG, 1X/DAY
     Route: 048
  3. VICODIN [Concomitant]
     Dosage: 10/500, MG
     Route: 048
  4. EFFEXOR [Concomitant]
     Indication: HOT FLUSH
     Dosage: 75 MG, 1X/DAY
     Route: 048
  5. TRAZODONE [Concomitant]
     Indication: SLEEP DISORDER
     Dosage: 150 MG, 1X/DAY
  6. METOPROLOL [Concomitant]
     Indication: HYPERTENSION
     Dosage: 25 MG, 1X/DAY
  7. CHANTIX [Suspect]
     Indication: SMOKING CESSATION THERAPY
     Dosage: UNK
     Route: 048
     Dates: start: 20110103
  8. ADVIL [Concomitant]
     Indication: IRRITABLE BOWEL SYNDROME
     Dosage: 75 MG, 1X/DAY
     Route: 048

REACTIONS (1)
  - FLATULENCE [None]
